FAERS Safety Report 25535085 (Version 1)
Quarter: 2025Q3

REPORT INFORMATION
  Report Type: Spontaneous
  Country: US (occurrence: US)
  Receive Date: 20250709
  Receipt Date: 20250709
  Transmission Date: 20251021
  Serious: No
  Sender: MYLAN
  Company Number: US-MYLANLABS-2025M1055831

PATIENT
  Sex: Male

DRUGS (2)
  1. FENTANYL [Suspect]
     Active Substance: FENTANYL
     Indication: Bone pain
  2. OXYCODONE [Concomitant]
     Active Substance: OXYCODONE
     Indication: Bone pain

REACTIONS (2)
  - Bone pain [Unknown]
  - Drug ineffective for unapproved indication [Unknown]
